FAERS Safety Report 17703608 (Version 1)
Quarter: 2020Q2

REPORT INFORMATION
  Report Type: Spontaneous
  Country: US (occurrence: US)
  Receive Date: 20200423
  Receipt Date: 20200423
  Transmission Date: 20200714
  Serious: Yes (Hospitalization)
  Sender: FDA-Public Use
  Company Number: None

PATIENT
  Age: 61 Year
  Sex: Female

DRUGS (15)
  1. PREGABALIN. [Concomitant]
     Active Substance: PREGABALIN
  2. CLOBETASOL [Concomitant]
     Active Substance: CLOBETASOL
  3. SENNA PLUS [Concomitant]
     Active Substance: DOCUSATE SODIUM\SENNOSIDES\SENNOSIDES A AND B
  4. CEPHALEXIN. [Concomitant]
     Active Substance: CEPHALEXIN
  5. KETOCONAZOLE. [Concomitant]
     Active Substance: KETOCONAZOLE
  6. DIAZEPAM. [Concomitant]
     Active Substance: DIAZEPAM
  7. METHYLPRED [Concomitant]
     Active Substance: METHYLPREDNISOLONE
  8. SUMATRIPTAN. [Concomitant]
     Active Substance: SUMATRIPTAN
  9. HUMIRA [Suspect]
     Active Substance: ADALIMUMAB
     Indication: RHEUMATOID ARTHRITIS
     Route: 058
     Dates: start: 20190911
  10. AMITRIPTYN [Concomitant]
  11. AMOX/K CLAV [Concomitant]
     Active Substance: AMOXICILLIN\CLAVULANATE POTASSIUM
  12. DULOXETINE. [Concomitant]
     Active Substance: DULOXETINE
  13. MUPIROCIN. [Concomitant]
     Active Substance: MUPIROCIN
  14. OXYCODONE [Concomitant]
     Active Substance: OXYCODONE
  15. HYDROXYZ HCL [Concomitant]
     Active Substance: HYDROXYZINE HYDROCHLORIDE

REACTIONS (5)
  - Pain [None]
  - Therapy interrupted [None]
  - Postoperative wound infection [None]
  - Lower limb fracture [None]
  - Arthralgia [None]

NARRATIVE: CASE EVENT DATE: 201911
